FAERS Safety Report 8954946 (Version 1)
Quarter: 2012Q4

REPORT INFORMATION
  Report Type: Spontaneous
  Country: ES (occurrence: None)
  Receive Date: 20121129
  Receipt Date: 20121129
  Transmission Date: 20130627
  Serious: Yes (Death, Hospitalization)
  Sender: FDA-Public Use
  Company Number: NSR_00722_2012

PATIENT
  Age: 64 Year
  Sex: Female

DRUGS (4)
  1. BACLOFEN [Suspect]
     Indication: TETANUS
     Dosage: Unknown catheter at L3-L4 levels
     Route: 037
  2. BACLOFEN [Suspect]
     Indication: TETANUS
     Dosage: 1 DAY
     Route: 037
  3. BACLOFEN [Suspect]
     Indication: TETANUS
     Route: 037
  4. VASOPROSSOR [Concomitant]

REACTIONS (6)
  - Toxicity to various agents [None]
  - Multi-organ failure [None]
  - Pupillary reflex impaired [None]
  - Electroencephalogram abnormal [None]
  - Muscle spasms [None]
  - Neurological decompensation [None]
